FAERS Safety Report 5470593-4 (Version None)
Quarter: 2007Q3

REPORT INFORMATION
  Report Type: 
  Country: None (occurrence: None)
  Receive Date: 20070928
  Receipt Date: 20070925
  Transmission Date: 20080115
  Serious: Yes (Life-Threatening)
  Sender: FDA-Public Use
  Company Number: PHMT2007CA01774

PATIENT
  Age: 59 Year
  Sex: Male

DRUGS (2)
  1. DIOVAN [Suspect]
     Indication: HYPERTENSION
     Dosage: 80 MG, QD
     Route: 048
     Dates: start: 20070301, end: 20070801
  2. CLONAZEPAM [Concomitant]
     Dosage: UNK, UNK

REACTIONS (11)
  - ABDOMINAL PAIN [None]
  - ANOREXIA [None]
  - ASTHENIA [None]
  - CONSTIPATION [None]
  - DIARRHOEA [None]
  - DIZZINESS [None]
  - GASTROINTESTINAL MOTILITY DISORDER [None]
  - HYPERTENSION [None]
  - MYALGIA [None]
  - NAUSEA [None]
  - VOMITING [None]
